FAERS Safety Report 4746305-6 (Version None)
Quarter: 2005Q3

REPORT INFORMATION
  Report Type: 
  Country: None (occurrence: None)
  Receive Date: 20050816
  Receipt Date: 20050816
  Transmission Date: 20060218
  Serious: Yes (Hospitalization)
  Sender: FDA-Public Use
  Company Number: None

PATIENT
  Sex: Female
  Weight: 72.5755 kg

DRUGS (1)
  1. MORPHINE SULFATE [Suspect]
     Dosage: 4MG   INTRAVENOU
     Route: 042

REACTIONS (2)
  - CHEST DISCOMFORT [None]
  - DYSPNOEA [None]
